FAERS Safety Report 23691585 (Version 1)
Quarter: 2024Q2

REPORT INFORMATION
  Report Type: Report from Study
  Country: US (occurrence: US)
  Receive Date: 20240401
  Receipt Date: 20240401
  Transmission Date: 20240715
  Serious: Yes (Disabling)
  Sender: FDA-Public Use
  Company Number: US-ABBVIE-5696828

PATIENT
  Sex: Male

DRUGS (2)
  1. ARMOUR THYROID [Suspect]
     Active Substance: THYROID, PORCINE
     Indication: Thyroid disorder
     Route: 048
     Dates: start: 2024, end: 2024
  2. ARMOUR THYROID [Suspect]
     Active Substance: THYROID, PORCINE
     Indication: Thyroid disorder
     Route: 048
     Dates: start: 2004

REACTIONS (1)
  - Disability [Unknown]

NARRATIVE: CASE EVENT DATE: 20240101
